FAERS Safety Report 17098482 (Version 1)
Quarter: 2019Q4

REPORT INFORMATION
  Report Type: Spontaneous
  Country: US (occurrence: US)
  Receive Date: 20191129
  Receipt Date: 20191129
  Transmission Date: 20200122
  Serious: Yes (Hospitalization)
  Sender: FDA-Public Use
  Company Number: None

PATIENT
  Sex: Female

DRUGS (22)
  1. PROVENTIL [Concomitant]
     Active Substance: ALBUTEROL
  2. LOSARTAN. [Concomitant]
     Active Substance: LOSARTAN
  3. METHOTREXATE. [Concomitant]
     Active Substance: METHOTREXATE
  4. PRAVASTATIN. [Concomitant]
     Active Substance: PRAVASTATIN
  5. SPIRONOLACT [Concomitant]
     Active Substance: SPIRONOLACTONE
  6. LATANOPROST. [Concomitant]
     Active Substance: LATANOPROST
  7. CALCIUM [Concomitant]
     Active Substance: CALCIUM
  8. NORVASC [Concomitant]
     Active Substance: AMLODIPINE BESYLATE
  9. ADVAIR HFA [Concomitant]
     Active Substance: FLUTICASONE PROPIONATE\SALMETEROL XINAFOATE
  10. METOPROLOL. [Concomitant]
     Active Substance: METOPROLOL
  11. NEXIUM [Concomitant]
     Active Substance: ESOMEPRAZOLE MAGNESIUM
  12. HUMIRA [Suspect]
     Active Substance: ADALIMUMAB
     Indication: RHEUMATOID ARTHRITIS
     Dosage: ?          OTHER FREQUENCY:EVERY 2 WEEKS;?
     Route: 058
     Dates: start: 20170612
  13. TYLENOL [Concomitant]
     Active Substance: ACETAMINOPHEN
  14. VITAMIN D3 [Concomitant]
     Active Substance: CHOLECALCIFEROL
  15. MOTRIN [Concomitant]
     Active Substance: IBUPROFEN
  16. TRAMADOL. [Concomitant]
     Active Substance: TRAMADOL
  17. BONIVA [Concomitant]
     Active Substance: IBANDRONATE SODIUM
  18. DICYCLOMINE [Concomitant]
     Active Substance: DICYCLOMINE HYDROCHLORIDE
  19. HYDROXYCHLOR [Concomitant]
     Active Substance: HYDROXYCHLOROQUINE
  20. PLAVIX [Concomitant]
     Active Substance: CLOPIDOGREL BISULFATE
  21. SINGULAIR [Concomitant]
     Active Substance: MONTELUKAST SODIUM
  22. VITAMIN B12 [Concomitant]
     Active Substance: CYANOCOBALAMIN

REACTIONS (4)
  - Fatigue [None]
  - Arthralgia [None]
  - Gastric ulcer haemorrhage [None]
  - Nasal congestion [None]
